FAERS Safety Report 21301439 (Version 1)
Quarter: 2022Q3

REPORT INFORMATION
  Report Type: Spontaneous
  Country: US (occurrence: None)
  Receive Date: 20220906
  Receipt Date: 20220906
  Transmission Date: 20221027
  Serious: Yes (Hospitalization)
  Sender: FDA-Public Use
  Company Number: None

PATIENT
  Age: 78 Year
  Sex: Female

DRUGS (1)
  1. ERLOTINIB [Suspect]
     Active Substance: ERLOTINIB
     Dosage: 100 MG DAILY ORAL
     Route: 048

REACTIONS (4)
  - Loss of consciousness [None]
  - Rash [None]
  - Laboratory test abnormal [None]
  - Musculoskeletal disorder [None]

NARRATIVE: CASE EVENT DATE: 20220906
